FAERS Safety Report 18475566 (Version 2)
Quarter: 2021Q1

REPORT INFORMATION
  Report Type: Report from Study
  Country: None (occurrence: US)
  Receive Date: 20201107
  Receipt Date: 20210201
  Transmission Date: 20210419
  Serious: Yes (Other)
  Sender: FDA-Public Use
  Company Number: US-ABBVIE-20K-163-3640081-00

PATIENT
  Age: 64 Year
  Sex: Female

DRUGS (2)
  1. IMBRUVICA [Suspect]
     Active Substance: IBRUTINIB
     Route: 048
     Dates: start: 20200720
  2. IMBRUVICA [Suspect]
     Active Substance: IBRUTINIB
     Indication: NON-HODGKIN^S LYMPHOMA
     Route: 048
     Dates: start: 20200721, end: 2020

REACTIONS (7)
  - Visual impairment [Unknown]
  - Eye operation [Unknown]
  - Skin fissures [Unknown]
  - Vitreous floaters [Unknown]
  - Diarrhoea [Unknown]
  - Cataract [Unknown]
  - Dry skin [Unknown]

NARRATIVE: CASE EVENT DATE: 202011
